FAERS Safety Report 9361869 (Version 2)
Quarter: 2013Q3

REPORT INFORMATION
  Report Type: Spontaneous
  Country: US (occurrence: US)
  Receive Date: 20130621
  Receipt Date: 20130822
  Transmission Date: 20140515
  Serious: Yes (Death)
  Sender: FDA-Public Use
  Company Number: US-GLAXOSMITHKLINE-A1027695A

PATIENT
  Age: 50 Year
  Sex: Female

DRUGS (5)
  1. ADVAIR [Suspect]
     Indication: PRODUCT USED FOR UNKNOWN INDICATION
     Dosage: 1PUFF TWICE PER DAY
     Route: 065
     Dates: start: 200812
  2. NEXIUM [Concomitant]
  3. PROAIR HFA [Concomitant]
  4. TRICOR [Concomitant]
  5. CRESTOR [Concomitant]

REACTIONS (1)
  - Death [Fatal]
